FAERS Safety Report 4383093-X (Version None)
Quarter: 2004Q2

REPORT INFORMATION
  Report Type: 
  Country: None (occurrence: None)
  Receive Date: 20040618
  Receipt Date: 20040609
  Transmission Date: 20050107
  Serious: Yes (Hospitalization)
  Sender: FDA-Public Use
  Company Number: 04P-144-0263353-00

PATIENT
  Age: 75 Year
  Sex: Male

DRUGS (6)
  1. ISOPTIN SR [Suspect]
     Indication: CARDIAC FAILURE
     Dosage: 120 MG, 1 IN 12 HR, PER ORAL
     Route: 048
     Dates: start: 20030501, end: 20030427
  2. CLOPIDOGREL BISULFATE [Concomitant]
  3. ENALAPRIL MALEATE [Concomitant]
  4. ATORVASTATIN CALCIUM [Concomitant]
  5. ALLOPURINOL [Concomitant]
  6. MORFINA (MST) [Concomitant]

REACTIONS (3)
  - HYPERKALAEMIA [None]
  - RENAL FAILURE ACUTE [None]
  - VOMITING [None]
